FAERS Safety Report 19317349 (Version 1)
Quarter: 2021Q2

REPORT INFORMATION
  Report Type: Spontaneous
  Country: NL (occurrence: NL)
  Receive Date: 20210527
  Receipt Date: 20210527
  Transmission Date: 20210717
  Serious: Yes (Other)
  Sender: FDA-Public Use
  Company Number: NL-TEVA-2021-NL-1915295

PATIENT
  Age: 70 Year
  Sex: Female
  Weight: 65 kg

DRUGS (2)
  1. LOSARTAN TABLET FO  50MG / BRAND NAME NOT SPECIFIED [Concomitant]
     Dosage: 50 MG (MILLIGRAM)THERAPY START DATE :THERAPY END DATE:ASKU
  2. SIMVASTATINE TABLET FO 10MG / BRAND NAME NOT SPECIFIED [Suspect]
     Active Substance: SIMVASTATIN
     Indication: HYPERCHOLESTEROLAEMIA
     Dosage: 10 MILLIGRAM DAILY; 1X PER DAY 1 PIECETHERAPY END DATE :ASKU
     Dates: start: 2016

REACTIONS (1)
  - Muscle rupture [Recovered/Resolved]

NARRATIVE: CASE EVENT DATE: 20210215
